FAERS Safety Report 9169373 (Version 3)
Quarter: 2013Q2

REPORT INFORMATION
  Report Type: Spontaneous
  Country: US (occurrence: US)
  Receive Date: 20130318
  Receipt Date: 20130621
  Transmission Date: 20140414
  Serious: Yes (Other)
  Sender: FDA-Public Use
  Company Number: US-BANPHARM-20131046

PATIENT
  Sex: Male

DRUGS (2)
  1. ZYRTEC LIQUID GELS 10 MG [Suspect]
     Indication: UPPER-AIRWAY COUGH SYNDROME
     Dosage: 1 DF, EVERY NIGHT,
     Route: 048
     Dates: start: 201301, end: 20130117
  2. DILANTIN 100 MG [Concomitant]
     Indication: SYNCOPE
     Dosage: 100 MG, 2 IN 1 DAY,
     Route: 065

REACTIONS (1)
  - Loss of consciousness [Recovered/Resolved]
